FAERS Safety Report 9767704 (Version 1)
Quarter: 2013Q4

REPORT INFORMATION
  Report Type: Spontaneous
  Country: JP (occurrence: JP)
  Receive Date: 20131217
  Receipt Date: 20131217
  Transmission Date: 20140711
  Serious: Yes (Other)
  Sender: FDA-Public Use
  Company Number: PHHY2013JP146078

PATIENT
  Age: 64 Year
  Sex: Male

DRUGS (7)
  1. GLIVEC [Suspect]
     Indication: CHRONIC MYELOID LEUKAEMIA
     Dosage: 400 MG, DAILY
     Route: 048
     Dates: start: 200704, end: 20131030
  2. GLIVEC [Suspect]
     Dosage: 300 MG, DAILY
     Route: 048
     Dates: start: 20131102
  3. GLIVEC [Suspect]
     Dosage: 400 MG,DAILY
     Route: 048
     Dates: start: 20131123
  4. GLIVEC [Suspect]
     Dosage: 300 MG, DAILY
     Route: 048
     Dates: start: 20131127
  5. TS-1 [Concomitant]
     Dosage: 100 MG, (50 MG TWICE DAILY),4 WEEKS ADMINISTRATION
     Route: 048
  6. KRESTIN [Concomitant]
     Dosage: 3 G, (1G 3 TIMES DAILY)
     Route: 048
  7. BIOFERMIN [Concomitant]
     Dosage: 3 G, (1G 3 TIMES DAILY)
     Route: 048

REACTIONS (2)
  - Gastric cancer recurrent [Unknown]
  - White blood cell count decreased [Unknown]
